FAERS Safety Report 4895847-1 (Version None)
Quarter: 2005Q4

REPORT INFORMATION
  Report Type: 
  Country: None (occurrence: None)
  Receive Date: 20051215
  Receipt Date: 20050707
  Transmission Date: 20060501
  Serious: Yes (Other)
  Sender: FDA-Public Use
  Company Number: 2005074032

PATIENT
  Age: 71 Year
  Sex: Female
  Weight: 72.5755 kg

DRUGS (4)
  1. BEXTRA [Suspect]
     Indication: COUGH
     Dosage: 20 MG (20 MG, 1 IN 1 AS NECESSARY), ORAL
     Route: 048
     Dates: start: 20050314
  2. NITROGLYCERIN [Concomitant]
  3. LIPITOR [Concomitant]
  4. PAXIL [Concomitant]

REACTIONS (4)
  - BLISTER [None]
  - INTENTIONAL DRUG MISUSE [None]
  - MYOCARDIAL INFARCTION [None]
  - SKIN DISCOLOURATION [None]
